FAERS Safety Report 5870568-7 (Version None)
Quarter: 2008Q3

REPORT INFORMATION
  Report Type: 
  Country: None (occurrence: None)
  Receive Date: 20080904
  Receipt Date: 20080829
  Transmission Date: 20090109
  Serious: Yes (Hospitalization)
  Sender: FDA-Public Use
  Company Number: A0695008A

PATIENT
  Age: 64 Year
  Sex: Female
  Weight: 65.5 kg

DRUGS (4)
  1. AVANDIA [Suspect]
     Dosage: 8MG PER DAY
     Route: 048
     Dates: start: 20060309, end: 20070531
  2. GLUCOPHAGE [Concomitant]
     Dates: start: 20040101
  3. ATENOLOL [Concomitant]
  4. NITROGLYCERIN [Concomitant]

REACTIONS (1)
  - MYOCARDIAL INFARCTION [None]
